FAERS Safety Report 8565064-2 (Version None)
Quarter: 2012Q3

REPORT INFORMATION
  Report Type: 
  Country: None (occurrence: None)
  Receive Date: 20120803
  Receipt Date: 20120727
  Transmission Date: 20120928
  Serious: Yes (Hospitalization)
  Sender: FDA-Public Use
  Company Number: DE-ROCHE-1094443

PATIENT
  Sex: Female
  Weight: 43 kg

DRUGS (4)
  1. DIOVAN [Concomitant]
     Route: 048
     Dates: start: 20110513
  2. AVASTIN [Suspect]
     Indication: LUNG ADENOCARCINOMA
     Route: 042
     Dates: start: 20110516
  3. PEMETREXED DISODIUM [Suspect]
     Indication: LUNG ADENOCARCINOMA
     Route: 042
     Dates: start: 20110516
  4. AMLODIPINE [Concomitant]
     Route: 048
     Dates: start: 20110513

REACTIONS (2)
  - VENOUS THROMBOSIS LIMB [None]
  - RENAL FAILURE [None]
